FAERS Safety Report 9341866 (Version 2)
Quarter: 2013Q2

REPORT INFORMATION
  Report Type: Spontaneous
  Country: FR (occurrence: FR)
  Receive Date: 20130611
  Receipt Date: 20130620
  Transmission Date: 20140414
  Serious: Yes (Death, Other)
  Sender: FDA-Public Use
  Company Number: FR-PFIZER INC-2013174478

PATIENT
  Age: 75 Year
  Sex: Male

DRUGS (7)
  1. CORDARONE [Suspect]
     Indication: ATRIAL FIBRILLATION
     Dosage: 200 MILLIGRAM(S);DAILY
     Route: 048
  2. SIMVASTATIN [Interacting]
     Dosage: 20 MILLIGRAM(S);DAILY
     Route: 048
  3. KARDEGIC [Suspect]
     Dosage: 75 MG, DAILY
     Route: 048
  4. PREVISCAN [Suspect]
     Indication: ATRIAL FIBRILLATION
     Dosage: 20 MG, DAILY
     Route: 048
  5. MICARDIS PLUS [Concomitant]
     Dosage: UNK
  6. NEBILOX [Concomitant]
     Dosage: UNK
  7. RILMENIDINE [Concomitant]
     Dosage: UNK

REACTIONS (7)
  - Drug interaction [Fatal]
  - Subdural haematoma [Fatal]
  - Fall [Not Recovered/Not Resolved]
  - Head injury [Not Recovered/Not Resolved]
  - Sepsis [Unknown]
  - Skeletal injury [Unknown]
  - Arthropathy [Unknown]
